FAERS Safety Report 10725835 (Version 2)
Quarter: 2015Q1

REPORT INFORMATION
  Report Type: Spontaneous
  Country: US (occurrence: US)
  Receive Date: 20150121
  Receipt Date: 20150206
  Transmission Date: 20150721
  Serious: No
  Sender: FDA-Public Use
  Company Number: US-ASTRAZENECA-2015SE03591

PATIENT
  Age: 782 Month
  Sex: Female

DRUGS (5)
  1. PULMICORT FLEXHALER [Suspect]
     Active Substance: BUDESONIDE
     Indication: ASTHMA
     Route: 055
     Dates: start: 201207
  2. PRILOSEC [Suspect]
     Active Substance: OMEPRAZOLE MAGNESIUM
     Route: 048
  3. PULMICORT FLEXHALER [Suspect]
     Active Substance: BUDESONIDE
     Indication: ASTHMA
     Route: 055
  4. PULMICORT FLEXHALER [Suspect]
     Active Substance: BUDESONIDE
     Indication: ASTHMA
     Route: 055
  5. BENAZEPRIL [Concomitant]
     Active Substance: BENAZEPRIL\BENAZEPRIL HYDROCHLORIDE
     Indication: HYPERTENSION
     Route: 048

REACTIONS (2)
  - Asthma [Unknown]
  - Off label use [Unknown]

NARRATIVE: CASE EVENT DATE: 201207
